FAERS Safety Report 20831925 (Version 1)
Quarter: 2022Q2

REPORT INFORMATION
  Report Type: 
  Country: None (occurrence: None)
  Receive Date: 20220516
  Receipt Date: 20220516
  Transmission Date: 20220721
  Serious: No
  Sender: FDA-Public Use
  Company Number: RU-ROCHE-3093295

PATIENT

DRUGS (7)
  1. MYCOPHENOLATE MOFETIL [Suspect]
     Active Substance: MYCOPHENOLATE MOFETIL
  2. CYCLOPHOSPHAMIDE [Suspect]
     Active Substance: CYCLOPHOSPHAMIDE
  3. TACROLIMUS [Suspect]
     Active Substance: TACROLIMUS
  4. INOTUZUMAB OZOGAMICIN [Concomitant]
     Active Substance: INOTUZUMAB OZOGAMICIN
  5. DEXAMETHASONE [Concomitant]
     Active Substance: DEXAMETHASONE
     Dosage: FOR 4 DAYS
  6. FLUDARABINE [Concomitant]
     Active Substance: FLUDARABINE PHOSPHATE
  7. CYTARABINE [Concomitant]
     Active Substance: CYTARABINE

REACTIONS (8)
  - Sepsis [None]
  - Pathogen resistance [None]
  - Septic shock [None]
  - Bone marrow failure [None]
  - Multiple organ dysfunction syndrome [None]
  - Febrile neutropenia [None]
  - Cytopenia [None]
  - Stomatitis [None]
